FAERS Safety Report 24855855 (Version 1)
Quarter: 2025Q1

REPORT INFORMATION
  Report Type: Spontaneous
  Country: CN (occurrence: CN)
  Receive Date: 20250117
  Receipt Date: 20250117
  Transmission Date: 20250408
  Serious: Yes (Hospitalization)
  Sender: ACCORD
  Company Number: None

PATIENT
  Age: 60 Year
  Sex: Female
  Weight: 42 kg

DRUGS (4)
  1. TRASTUZUMAB [Suspect]
     Active Substance: TRASTUZUMAB
     Indication: Invasive ductal breast carcinoma
     Dosage: STRENGTH: 60 MG, 258 MILLIGRAM, QD, IV DRIP
     Dates: start: 20250102, end: 20250102
  2. CARBOPLATIN [Suspect]
     Active Substance: CARBOPLATIN
     Indication: Invasive ductal breast carcinoma
     Dosage: 300 MILLIGRAM, QD, V DRIP
     Dates: start: 20250103, end: 20250103
  3. PACLITAXEL [Suspect]
     Active Substance: PACLITAXEL
     Indication: Invasive ductal breast carcinoma
     Dosage: 360 MILLIGRAM, QD, IV DRIP
     Dates: start: 20250103, end: 20250103
  4. TRASTUZUMAB [Suspect]
     Active Substance: TRASTUZUMAB
     Indication: Invasive ductal breast carcinoma
     Dosage: STRENGTH: 60 MG, UNKNOWN DOSE, IV DRIP

REACTIONS (1)
  - Myelosuppression [Unknown]
